FAERS Safety Report 7509757-4 (Version None)
Quarter: 2011Q2

REPORT INFORMATION
  Report Type: 
  Country: None (occurrence: None)
  Receive Date: 20110527
  Receipt Date: 20110525
  Transmission Date: 20111010
  Serious: Yes (Death, Hospitalization)
  Sender: FDA-Public Use
  Company Number: US-JNJFOC-20110511541

PATIENT
  Sex: Female
  Weight: 181.44 kg

DRUGS (4)
  1. STELARA [Suspect]
     Route: 058
     Dates: start: 20101122
  2. STELARA [Suspect]
     Indication: PSORIASIS
     Route: 058
     Dates: start: 20110224
  3. STELARA [Suspect]
     Route: 058
     Dates: start: 20100101
  4. STELARA [Suspect]
     Route: 058
     Dates: start: 20100822

REACTIONS (2)
  - STREPTOCOCCAL INFECTION [None]
  - GANGRENE [None]
